FAERS Safety Report 24339753 (Version 1)
Quarter: 2024Q3

REPORT INFORMATION
  Report Type: Spontaneous
  Country: US (occurrence: None)
  Receive Date: 20240919
  Receipt Date: 20240919
  Transmission Date: 20241016
  Serious: No
  Sender: Public
  Company Number: None

PATIENT
  Age: 37 Year
  Sex: Female
  Weight: 45 kg

DRUGS (4)
  1. PREMARIN [Suspect]
     Active Substance: ESTROGENS, CONJUGATED
     Indication: Vaginal haemorrhage
     Dosage: OTHER QUANTITY : 1 TABLET(S);?
     Route: 048
     Dates: start: 20240913, end: 20240917
  2. OXYCODONE [Concomitant]
     Active Substance: OXYCODONE
  3. MONTELUKAST [Concomitant]
     Active Substance: MONTELUKAST SODIUM
  4. FIBER [Concomitant]

REACTIONS (9)
  - Abdominal distension [None]
  - Peripheral swelling [None]
  - Oedema peripheral [None]
  - Oedema peripheral [None]
  - Joint stiffness [None]
  - Arthralgia [None]
  - Pain in extremity [None]
  - Abdominal pain [None]
  - Discomfort [None]

NARRATIVE: CASE EVENT DATE: 20240914
